FAERS Safety Report 10163816 (Version 1)
Quarter: 2014Q2

REPORT INFORMATION
  Report Type: Spontaneous
  Country: US (occurrence: US)
  Receive Date: 20140509
  Receipt Date: 20140509
  Transmission Date: 20141212
  Serious: No
  Sender: FDA-Public Use
  Company Number: US-009507513-2012SP023669

PATIENT
  Sex: 0

DRUGS (3)
  1. CLARITIN ORAL SOLUTION [Suspect]
     Indication: PRODUCT USED FOR UNKNOWN INDICATION
     Dosage: UNK UNK, QPM
     Route: 048
     Dates: start: 20120408
  2. CLARITIN ORAL SOLUTION [Suspect]
     Dosage: UNK UNK, QAM
     Route: 048
     Dates: start: 20120409
  3. CLARITIN ORAL SOLUTION [Suspect]
     Dosage: UNK UNK, QAM
     Route: 048
     Dates: start: 20120409

REACTIONS (1)
  - Overdose [Unknown]
